FAERS Safety Report 9452835 (Version 17)
Quarter: 2018Q4

REPORT INFORMATION
  Report Type: Spontaneous
  Country: GB (occurrence: GB)
  Receive Date: 20130812
  Receipt Date: 20181207
  Transmission Date: 20190205
  Serious: Yes (Other)
  Sender: FDA-Public Use
  Company Number: GB-JNJFOC-20130802045

PATIENT
  Age: 42 Year
  Sex: Female
  Weight: 74 kg

DRUGS (32)
  1. NORVIR [Suspect]
     Active Substance: RITONAVIR
     Indication: HIV INFECTION
     Dosage: FOR 2 YEARS
     Route: 048
     Dates: start: 20060905, end: 20081022
  2. INTELENCE [Suspect]
     Active Substance: ETRAVIRINE
     Indication: HIV INFECTION
     Route: 048
     Dates: end: 20081023
  3. TRUVADA [Suspect]
     Active Substance: EMTRICITABINE\TENOFOVIR DISOPROXIL FUMARATE
     Indication: HIV INFECTION
     Dosage: 18 MONTHS
     Route: 048
     Dates: start: 20070905, end: 20081023
  4. TRUVADA [Suspect]
     Active Substance: EMTRICITABINE\TENOFOVIR DISOPROXIL FUMARATE
     Indication: HIV INFECTION
     Dosage: 18 MONTHS
     Route: 048
     Dates: start: 20070905, end: 20081023
  5. OXYGEN. [Concomitant]
     Active Substance: OXYGEN
     Indication: PRODUCT USED FOR UNKNOWN INDICATION
     Route: 055
  6. AZIDOTHYMIDINE [Concomitant]
     Active Substance: ZIDOVUDINE
     Route: 042
  7. NORVIR [Suspect]
     Active Substance: RITONAVIR
     Indication: HIV INFECTION
     Route: 048
  8. ZIDOVUDINE. [Suspect]
     Active Substance: ZIDOVUDINE
     Indication: ANTIVIRAL PROPHYLAXIS
     Route: 048
  9. INSULIN [Concomitant]
     Active Substance: INSULIN NOS
     Indication: GESTATIONAL DIABETES
     Route: 065
  10. INSULIN [Concomitant]
     Active Substance: INSULIN NOS
     Indication: GESTATIONAL DIABETES
     Route: 065
  11. APTIVUS [Suspect]
     Active Substance: TIPRANAVIR
     Indication: HIV INFECTION
     Dosage: FOR 2 YEARS
     Route: 048
     Dates: start: 20060905, end: 20081023
  12. ISENTRESS [Suspect]
     Active Substance: RALTEGRAVIR POTASSIUM
     Indication: HIV INFECTION
     Dosage: FOR 2 YEARS AND 4 MONTHS
     Route: 048
  13. TIPRANAVIR [Concomitant]
     Active Substance: TIPRANAVIR
     Route: 065
     Dates: start: 20070605
  14. ZIDOVUDINE. [Concomitant]
     Active Substance: ZIDOVUDINE
     Route: 065
  15. PREZISTA [Suspect]
     Active Substance: DARUNAVIR ETHANOLATE
     Indication: HIV INFECTION
     Dosage: 2/1 DAYS
     Route: 048
     Dates: start: 20081023
  16. INTELENCE [Suspect]
     Active Substance: ETRAVIRINE
     Indication: HIV INFECTION
     Route: 048
     Dates: start: 20081023
  17. TRUVADA [Suspect]
     Active Substance: EMTRICITABINE\TENOFOVIR DISOPROXIL FUMARATE
     Indication: HIV INFECTION
     Route: 048
     Dates: start: 20070605, end: 2007
  18. ENFUVIRTIDE. [Concomitant]
     Active Substance: ENFUVIRTIDE
     Route: 042
  19. PREDNISOLONE. [Concomitant]
     Active Substance: PREDNISOLONE
     Indication: PRODUCT USED FOR UNKNOWN INDICATION
     Route: 048
  20. NOVORAPID [Concomitant]
     Active Substance: INSULIN ASPART
     Indication: GESTATIONAL DIABETES
     Dosage: 4 IU
     Route: 058
     Dates: end: 20091022
  21. NITROUS OXIDE. [Concomitant]
     Active Substance: NITROUS OXIDE
     Route: 042
  22. NORVIR [Suspect]
     Active Substance: RITONAVIR
     Indication: HIV INFECTION
     Dosage: FOR 2 YEARS
     Route: 048
     Dates: start: 20081023
  23. NORVIR [Suspect]
     Active Substance: RITONAVIR
     Indication: HIV INFECTION
     Route: 048
  24. NITROUS OXIDE. [Concomitant]
     Active Substance: NITROUS OXIDE
     Route: 042
  25. TIPRANAVIR [Concomitant]
     Active Substance: TIPRANAVIR
     Route: 065
     Dates: start: 20081023
  26. INTELENCE [Suspect]
     Active Substance: ETRAVIRINE
     Indication: HIV INFECTION
     Route: 048
  27. APTIVUS [Suspect]
     Active Substance: TIPRANAVIR
     Indication: HIV INFECTION
     Route: 048
     Dates: start: 20081023
  28. ENFUVIRTIDE. [Concomitant]
     Active Substance: ENFUVIRTIDE
     Route: 042
  29. INTELENCE [Suspect]
     Active Substance: ETRAVIRINE
     Indication: HIV INFECTION
     Route: 048
  30. ISENTRESS [Suspect]
     Active Substance: RALTEGRAVIR POTASSIUM
     Indication: HIV INFECTION
     Route: 048
     Dates: start: 20081023, end: 20090221
  31. ZIDOVUDINE. [Suspect]
     Active Substance: ZIDOVUDINE
     Indication: ANTIVIRAL PROPHYLAXIS
     Route: 048
  32. NOVORAPID [Concomitant]
     Active Substance: INSULIN ASPART
     Indication: GESTATIONAL DIABETES
     Route: 058

REACTIONS (6)
  - Lipodystrophy acquired [Recovered/Resolved]
  - Alanine aminotransferase abnormal [Recovered/Resolved]
  - Premature labour [Recovered/Resolved]
  - Drug-induced liver injury [Unknown]
  - Exposure during pregnancy [Recovered/Resolved]
  - Aspartate aminotransferase abnormal [Recovered/Resolved]

NARRATIVE: CASE EVENT DATE: 20090221
